FAERS Safety Report 9156732 (Version 2)
Quarter: 2013Q1

REPORT INFORMATION
  Report Type: Spontaneous
  Country: PL (occurrence: None)
  Receive Date: 20130211
  Receipt Date: 20130320
  Transmission Date: 20140127
  Serious: Yes (Hospitalization)
  Sender: FDA-Public Use
  Company Number: 2013SGN00041

PATIENT
  Age: 42 Year
  Sex: Male
  Weight: 83 kg

DRUGS (3)
  1. BRENTUXIMAB VEDOTIN [Suspect]
     Indication: HODGKIN^S DISEASE
     Dosage: 1.8 MG/KG, Q12D, INTRAVENOUS
     Route: 042
     Dates: start: 20120316, end: 20130104
  2. FRAGMIN DALTEPARIN SODIUM) [Concomitant]
  3. HEVIRAN (ACICLOVIR SODIUM) [Concomitant]

REACTIONS (4)
  - Pneumonia [None]
  - H1N1 influenza [None]
  - Upper respiratory tract infection bacterial [None]
  - Pharyngitis [None]
